FAERS Safety Report 18444794 (Version 2)
Quarter: 2020Q4

REPORT INFORMATION
  Report Type: Spontaneous
  Country: SE (occurrence: SE)
  Receive Date: 20201030
  Receipt Date: 20201123
  Transmission Date: 20210114
  Serious: Yes (Other)
  Sender: FDA-Public Use
  Company Number: SE-GLAXOSMITHKLINE-SE2020215205

PATIENT
  Sex: Female

DRUGS (1)
  1. NICORETTE [Suspect]
     Active Substance: NICOTINE
     Indication: SMOKING CESSATION THERAPY
     Dosage: DAILY, NORMAL DOSE, THERAPY ENDED SOME MONTHS AGO
     Route: 048

REACTIONS (3)
  - Nicotine dependence [Recovered/Resolved]
  - Exposure during pregnancy [Unknown]
  - Intentional product use issue [Recovered/Resolved]
